FAERS Safety Report 12036926 (Version 1)
Quarter: 2016Q1

REPORT INFORMATION
  Report Type: Spontaneous
  Country: US (occurrence: US)
  Receive Date: 20160208
  Receipt Date: 20160208
  Transmission Date: 20160526
  Serious: No
  Sender: FDA-Public Use
  Company Number: US-BIOGEN-2011BI012644

PATIENT
  Age: 44 Year
  Sex: Female

DRUGS (1)
  1. TYSABRI [Suspect]
     Active Substance: NATALIZUMAB
     Indication: MULTIPLE SCLEROSIS
     Route: 042
     Dates: start: 20110302

REACTIONS (9)
  - Hypertension [Recovered/Resolved]
  - Headache [Recovered/Resolved]
  - Trigeminal neuralgia [Recovered/Resolved]
  - Vomiting [Recovered/Resolved]
  - Multiple sclerosis relapse [Recovered/Resolved]
  - Crohn^s disease [Recovered/Resolved]
  - Oral pustule [Not Recovered/Not Resolved]
  - Stress [Recovered/Resolved]
  - Nausea [Recovered/Resolved]

NARRATIVE: CASE EVENT DATE: 20110302
